FAERS Safety Report 24458323 (Version 1)
Quarter: 2024Q4

REPORT INFORMATION
  Report Type: Report from Study
  Country: CA (occurrence: CA)
  Receive Date: 20241018
  Receipt Date: 20241018
  Transmission Date: 20250114
  Serious: No
  Sender: ROCHE
  Company Number: CA-ROCHE-3527625

PATIENT
  Sex: Female

DRUGS (20)
  1. RITUXAN [Suspect]
     Active Substance: RITUXIMAB
     Indication: Myositis
     Dosage: NO PIRS,LAST RITUXAN INFUSION:14/JUN/2023
     Route: 042
     Dates: start: 20150318
  2. ACCURETIC [Concomitant]
     Active Substance: HYDROCHLOROTHIAZIDE\QUINAPRIL HYDROCHLORIDE
  3. BACTRIM [Concomitant]
     Active Substance: SULFAMETHOXAZOLE\TRIMETHOPRIM
  4. CETIRIZINE [Concomitant]
     Active Substance: CETIRIZINE HYDROCHLORIDE
  5. CORTISONE [Concomitant]
     Active Substance: CORTISONE
     Indication: Myositis
  6. FENTANYL [Concomitant]
     Active Substance: FENTANYL
  7. GRAVOL [Concomitant]
     Active Substance: DIMENHYDRINATE
  8. HYDROMORPHONE [Concomitant]
     Active Substance: HYDROMORPHONE
  9. IMURAN [Concomitant]
     Active Substance: AZATHIOPRINE
  10. MOTRIN [Concomitant]
     Active Substance: IBUPROFEN
  11. ONDANSETRON [Concomitant]
     Active Substance: ONDANSETRON
  12. PENNSAID [Concomitant]
     Active Substance: DICLOFENAC SODIUM
  13. PERCOCET [Concomitant]
     Active Substance: ACETAMINOPHEN\OXYCODONE HYDROCHLORIDE
  14. PLAQUENIL [Concomitant]
     Active Substance: HYDROXYCHLOROQUINE SULFATE
  15. PRAVASTATIN [Concomitant]
     Active Substance: PRAVASTATIN
  16. PREDNISONE [Concomitant]
     Active Substance: PREDNISONE
  17. PREGABALIN [Concomitant]
     Active Substance: PREGABALIN
  18. RABEPRAZOLE [Concomitant]
     Active Substance: RABEPRAZOLE
  19. TYLENOL WITH CODEINE [Concomitant]
     Active Substance: ACETAMINOPHEN\CODEINE PHOSPHATE
  20. VOLTAREN [Concomitant]
     Active Substance: DICLOFENAC SODIUM

REACTIONS (1)
  - Burning sensation [Unknown]
